FAERS Safety Report 8501071 (Version 4)
Quarter: 2012Q4

REPORT INFORMATION
  Report Type: Spontaneous
  Country: US (occurrence: None)
  Receive Date: 20120404
  Receipt Date: 20120830
  Transmission Date: 20130627
  Serious: Yes (Other)
  Sender: FDA-Public Use
  Company Number: CIP11002941

PATIENT
  Age: 55 Year
  Sex: Male
  Weight: 56.4 kg

DRUGS (9)
  1. ACTONEL [Suspect]
     Indication: OSTEOPOROSIS PROPHYLAXIS
     Dosage: 35 MG ONCE WEEKLY, ORAL
     Route: 048
     Dates: start: 200302
  2. PYRIDOSTIGMINE (PYRIDOSTIGMINE) [Concomitant]
  3. LIPITOR [Concomitant]
  4. PREDNISONE [Concomitant]
  5. OXYCODONE/ACETAMINOPHEN (OXYCODONE HYDROCHLORIDE, PARACETAMOL) [Concomitant]
  6. RANITIDINE HYDROCHLORIDE [Concomitant]
  7. NEOMYCIN (NEOMYCIN) [Concomitant]
  8. CALTRATE WITH VITAMIN D [Concomitant]
  9. ZOCOR [Concomitant]

REACTIONS (7)
  - Femur fracture [None]
  - Fall [None]
  - Fracture delayed union [None]
  - Stress fracture [None]
  - Fracture nonunion [None]
  - Fracture displacement [None]
  - Bone fragmentation [None]
